FAERS Safety Report 9977024 (Version 1)
Quarter: 2014Q1

REPORT INFORMATION
  Report Type: Report from Study
  Country: US (occurrence: US)
  Receive Date: 20140306
  Receipt Date: 20140306
  Transmission Date: 20141002
  Serious: No
  Sender: FDA-Public Use
  Company Number: US-ABBVIE-13P-163-1168250-00

PATIENT
  Sex: Male
  Weight: 74.91 kg

DRUGS (6)
  1. HUMIRA [Suspect]
     Indication: RHEUMATOID ARTHRITIS
     Dates: start: 2010, end: 2011
  2. OXYCONTIN [Concomitant]
     Indication: PAIN
  3. SOMA [Concomitant]
     Indication: PAIN
  4. AMLODIPINE BENZAPRINE [Concomitant]
     Indication: HYPERTENSION
  5. PLAQUINELL [Concomitant]
     Indication: RHEUMATOID ARTHRITIS
  6. XANAX [Concomitant]
     Indication: ANXIETY

REACTIONS (2)
  - Rash pustular [Recovered/Resolved]
  - Rash pustular [Recovered/Resolved]
